FAERS Safety Report 8810925 (Version 1)
Quarter: 2012Q4

REPORT INFORMATION
  Report Type: Spontaneous
  Country: US (occurrence: None)
  Receive Date: 20120924
  Receipt Date: 20120924
  Transmission Date: 20130627
  Serious: Yes (Hospitalization)
  Sender: FDA-Public Use
  Company Number: None

PATIENT
  Age: 31 Year
  Sex: Female
  Weight: 68.04 kg

DRUGS (2)
  1. REGLAN [Suspect]
     Indication: NAUSEA
     Route: 042
     Dates: start: 20120129, end: 20120202
  2. REGLAN [Suspect]
     Indication: MIGRAINE
     Route: 042
     Dates: start: 20120129, end: 20120202

REACTIONS (2)
  - Grand mal convulsion [None]
  - Dyskinesia [None]
